FAERS Safety Report 18513998 (Version 1)
Quarter: 2020Q4

REPORT INFORMATION
  Report Type: Spontaneous
  Country: US (occurrence: US)
  Receive Date: 20201118
  Receipt Date: 20201118
  Transmission Date: 20210114
  Serious: No
  Sender: FDA-Public Use
  Company Number: US-ALLERGAN-2016735US

PATIENT
  Age: 63 Year
  Sex: Female

DRUGS (3)
  1. ALPHAGAN P [Suspect]
     Active Substance: BRIMONIDINE TARTRATE
     Indication: DRY EYE
     Dosage: 2 GTT, QHS
     Route: 065
     Dates: start: 202001
  2. TRAZODONE [Concomitant]
     Active Substance: TRAZODONE HYDROCHLORIDE
     Indication: SLEEP DISORDER
     Dosage: 100 MG, QHS
  3. ALPHAGAN P [Suspect]
     Active Substance: BRIMONIDINE TARTRATE
     Indication: OCULAR HYPERAEMIA

REACTIONS (2)
  - Product use in unapproved indication [Unknown]
  - Growth of eyelashes [Not Recovered/Not Resolved]

NARRATIVE: CASE EVENT DATE: 202001
